FAERS Safety Report 13443002 (Version 1)
Quarter: 2017Q2

REPORT INFORMATION
  Report Type: Spontaneous
  Country: US (occurrence: US)
  Receive Date: 20170414
  Receipt Date: 20170414
  Transmission Date: 20170830
  Serious: Yes (Other)
  Sender: FDA-Public Use
  Company Number: US-DEPOMED, INC.-US-2017DEP000729

PATIENT

DRUGS (5)
  1. PROGESTERONE. [Concomitant]
     Active Substance: PROGESTERONE
     Indication: HORMONE THERAPY
     Dosage: 4 MG, QD
  2. GRALISE [Suspect]
     Active Substance: GABAPENTIN
     Indication: NECK PAIN
     Dosage: 300 MG, QD, TITRATED ON THE STARTER PACK
     Route: 048
     Dates: start: 20170401, end: 20170406
  3. TIZANIDINE HCL [Concomitant]
     Active Substance: TIZANIDINE HYDROCHLORIDE
     Indication: MUSCLE SPASMS
     Dosage: UNK
  4. ESTRADIOL. [Concomitant]
     Active Substance: ESTRADIOL
     Indication: HORMONE THERAPY
     Dosage: UNK
  5. GRALISE [Suspect]
     Active Substance: GABAPENTIN
     Indication: BACK PAIN

REACTIONS (11)
  - Feeling abnormal [Not Recovered/Not Resolved]
  - Vertigo [Not Recovered/Not Resolved]
  - Affect lability [Not Recovered/Not Resolved]
  - Panic attack [Not Recovered/Not Resolved]
  - Nervousness [Not Recovered/Not Resolved]
  - Adverse event [Not Recovered/Not Resolved]
  - Agitation [Not Recovered/Not Resolved]
  - Dreamy state [Not Recovered/Not Resolved]
  - Product use in unapproved indication [Recovered/Resolved]
  - Anxiety [Not Recovered/Not Resolved]
  - Fatigue [Not Recovered/Not Resolved]

NARRATIVE: CASE EVENT DATE: 20170401
